FAERS Safety Report 24561097 (Version 1)
Quarter: 2024Q4

REPORT INFORMATION
  Report Type: Spontaneous
  Country: GB (occurrence: GB)
  Receive Date: 20241029
  Receipt Date: 20241029
  Transmission Date: 20250114
  Serious: Yes (Other)
  Sender: MYLAN
  Company Number: None

PATIENT
  Age: 55 Year
  Sex: Female

DRUGS (2)
  1. CITALOPRAM [Suspect]
     Active Substance: CITALOPRAM
     Indication: Depression
     Dosage: 40 MILLIGRAM
     Route: 065
  2. CITALOPRAM [Suspect]
     Active Substance: CITALOPRAM
     Dosage: UNK
     Route: 065

REACTIONS (1)
  - Alcoholism [Recovered/Resolved]
